FAERS Safety Report 25385607 (Version 1)
Quarter: 2025Q2

REPORT INFORMATION
  Report Type: Spontaneous
  Country: US (occurrence: None)
  Receive Date: 20250602
  Receipt Date: 20250602
  Transmission Date: 20250717
  Serious: Yes (Other)
  Sender: FDA-CTU
  Company Number: None

PATIENT
  Age: 78 Year
  Sex: Female
  Weight: 64.41 kg

DRUGS (13)
  1. DUPIXENT [Suspect]
     Active Substance: DUPILUMAB
     Indication: Dermatitis atopic
     Dates: start: 20250313
  2. CLOBETASOL [Concomitant]
     Active Substance: CLOBETASOL
  3. ADVAIR DISKUS [Suspect]
     Active Substance: FLUTICASONE PROPIONATE\SALMETEROL XINAFOATE
  4. AZELASTINE [Concomitant]
     Active Substance: AZELASTINE
  5. CEVIMELINE [Concomitant]
     Active Substance: CEVIMELINE
  6. EZETIMIBE [Concomitant]
     Active Substance: EZETIMIBE
  7. FEXOFENADINE [Concomitant]
     Active Substance: FEXOFENADINE HYDROCHLORIDE
  8. METFORMIN [Concomitant]
     Active Substance: METFORMIN HYDROCHLORIDE
  9. MONTELUKAST [Concomitant]
     Active Substance: MONTELUKAST
  10. PILOCARPINE [Concomitant]
     Active Substance: PILOCARPINE
  11. PROLIA [Concomitant]
     Active Substance: DENOSUMAB
  12. ROSUVASTATIN [Concomitant]
     Active Substance: ROSUVASTATIN
  13. VENTOLIN HFA INH [Concomitant]

REACTIONS (1)
  - Lacrimation increased [None]

NARRATIVE: CASE EVENT DATE: 20250514
